FAERS Safety Report 12766089 (Version 1)
Quarter: 2016Q3

REPORT INFORMATION
  Report Type: Spontaneous
  Country: US (occurrence: US)
  Receive Date: 20160921
  Receipt Date: 20160921
  Transmission Date: 20161109
  Serious: No
  Sender: FDA-Public Use
  Company Number: US-BAUSCH-BL-2016-004697

PATIENT
  Age: 70 Year
  Sex: Female
  Weight: 48.12 kg

DRUGS (6)
  1. EFUDEX [Suspect]
     Active Substance: FLUOROURACIL
     Indication: PRECANCEROUS SKIN LESION
     Dosage: 1 APPLICATION TO HER FACE TWICE DAILY
     Route: 061
     Dates: start: 2013, end: 20160208
  2. FISH OIL [Concomitant]
     Active Substance: FISH OIL
     Indication: SUPPLEMENTATION THERAPY
     Route: 065
  3. VITAMIN B [Concomitant]
     Active Substance: VITAMIN B
     Indication: SUPPLEMENTATION THERAPY
     Route: 065
  4. CALCIUM [Concomitant]
     Active Substance: CALCIUM
     Indication: SUPPLEMENTATION THERAPY
     Route: 065
  5. SIMVASTATIN. [Concomitant]
     Active Substance: SIMVASTATIN
     Indication: BLOOD CHOLESTEROL INCREASED
     Dosage: 1/4 TAB ONCE DAILY
     Route: 048
  6. EFUDEX [Suspect]
     Active Substance: FLUOROURACIL
     Indication: SUNBURN
     Dosage: 1 APPLICATION TO HER FACE TWICE DAILY
     Route: 061
     Dates: start: 20160223

REACTIONS (7)
  - Paraesthesia [Not Recovered/Not Resolved]
  - Lip dry [Unknown]
  - Pruritus [Not Recovered/Not Resolved]
  - Dizziness [Not Recovered/Not Resolved]
  - Nasal congestion [Recovered/Resolved]
  - Pyrexia [Recovered/Resolved]
  - Chapped lips [Unknown]

NARRATIVE: CASE EVENT DATE: 201602
